FAERS Safety Report 23050774 (Version 1)
Quarter: 2023Q4

REPORT INFORMATION
  Report Type: Spontaneous
  Country: IT (occurrence: IT)
  Receive Date: 20231010
  Receipt Date: 20231010
  Transmission Date: 20240110
  Serious: Yes (Death, Hospitalization, Other)
  Sender: FDA-Public Use
  Company Number: IT-AMGEN-ITASP2023175950

PATIENT
  Age: 8 Year
  Sex: Male

DRUGS (1)
  1. BLINATUMOMAB [Suspect]
     Active Substance: BLINATUMOMAB
     Indication: Acute lymphocytic leukaemia refractory
     Dosage: UNK
     Route: 065

REACTIONS (3)
  - B-cell type acute leukaemia [Fatal]
  - Trichosporon infection [Recovered/Resolved]
  - Neutropenia [Not Recovered/Not Resolved]
